FAERS Safety Report 18944022 (Version 1)
Quarter: 2021Q1

REPORT INFORMATION
  Report Type: Spontaneous
  Country: US (occurrence: US)
  Receive Date: 20210226
  Receipt Date: 20210226
  Transmission Date: 20210420
  Serious: No
  Sender: FDA-Public Use
  Company Number: US-BIOVITRUM-2021US1769

PATIENT
  Age: 1 Year
  Sex: Male
  Weight: 10 kg

DRUGS (8)
  1. ATROVENT HFA 17MCG HFA AER AD [Concomitant]
     Dosage: 17MCG HFA AER AD
  2. EPINEPHRINE HCL [Concomitant]
     Active Substance: EPINEPHRINE
  3. NYSTATIN?TRIAMCINOLONE [Concomitant]
  4. ALBUTEROL SULFATE. [Concomitant]
     Active Substance: ALBUTEROL SULFATE
  5. FLOVENT HFA 220 MCG AER W/ADAP [Concomitant]
     Dosage: 220 MCG
  6. MULTIVITAMIN CAPSULE [Concomitant]
  7. SYNAGIS [Suspect]
     Active Substance: PALIVIZUMAB
     Indication: GASTROSTOMY
     Dosage: SYNAGIS 100MG/1ML VL LIQUID
     Route: 030
     Dates: start: 20201119
  8. SYNAGIS [Suspect]
     Active Substance: PALIVIZUMAB
     Indication: DEPENDENCE ON RESPIRATOR

REACTIONS (2)
  - Off label use [Unknown]
  - Weight decreased [Unknown]

NARRATIVE: CASE EVENT DATE: 20201119
